FAERS Safety Report 10749663 (Version 1)
Quarter: 2015Q1

REPORT INFORMATION
  Report Type: Report from Study
  Country: US (occurrence: US)
  Receive Date: 20150129
  Receipt Date: 20150129
  Transmission Date: 20150721
  Serious: Yes (Hospitalization, Other)
  Sender: FDA-Public Use
  Company Number: US-TEVA-536746USA

PATIENT
  Age: 22 Year
  Sex: Female

DRUGS (2)
  1. CLOZAPINE. [Suspect]
     Active Substance: CLOZAPINE
     Route: 048
     Dates: end: 2007
  2. CLOZAPINE. [Suspect]
     Active Substance: CLOZAPINE
     Route: 048
     Dates: start: 2012

REACTIONS (3)
  - Pyrexia [Unknown]
  - Hepatic failure [Unknown]
  - Skin lesion [Unknown]

NARRATIVE: CASE EVENT DATE: 20141222
